FAERS Safety Report 23314151 (Version 4)
Quarter: 2024Q1

REPORT INFORMATION
  Report Type: Spontaneous
  Country: US (occurrence: US)
  Receive Date: 20231219
  Receipt Date: 20240209
  Transmission Date: 20240410
  Serious: Yes (Other)
  Sender: FDA-Public Use
  Company Number: US-PFIZER INC-PV202300203050

PATIENT
  Age: 52 Year
  Sex: Male

DRUGS (1)
  1. ZIRABEV [Suspect]
     Active Substance: BEVACIZUMAB-BVZR
     Indication: Colon cancer
     Dosage: UNK

REACTIONS (11)
  - Hydronephrosis [Unknown]
  - Kidney fibrosis [Unknown]
  - Nephrolithiasis [Unknown]
  - Pyelonephritis [Unknown]
  - Ureteritis [Unknown]
  - Atelectasis [Unknown]
  - Hepatic steatosis [Unknown]
  - Neoplasm progression [Unknown]
  - Gallbladder atrophy [Unknown]
  - Colostomy [Unknown]
  - Abdominal hernia [Unknown]
